FAERS Safety Report 19983942 (Version 1)
Quarter: 2021Q4

REPORT INFORMATION
  Report Type: Spontaneous
  Country: US (occurrence: US)
  Receive Date: 20211021
  Receipt Date: 20211021
  Transmission Date: 20220303
  Serious: Yes (Other)
  Sender: FDA-Public Use
  Company Number: None

PATIENT
  Sex: Female

DRUGS (3)
  1. VITRASE [Suspect]
     Active Substance: HYALURONIDASE, OVINE
  2. VITAMIN C NATURES BOUNTY [Concomitant]
     Dates: start: 20211011
  3. HERBALS\TURMERIC [Concomitant]
     Active Substance: HERBALS\TURMERIC
     Dates: start: 20211010

REACTIONS (5)
  - Swelling face [None]
  - Headache [None]
  - Oral discomfort [None]
  - Burning sensation [None]
  - Mental disorder [None]

NARRATIVE: CASE EVENT DATE: 20210728
